FAERS Safety Report 8065552-1 (Version None)
Quarter: 2012Q1

REPORT INFORMATION
  Report Type: 
  Country: None (occurrence: None)
  Receive Date: 20120124
  Receipt Date: 20120111
  Transmission Date: 20120608
  Serious: Yes (Other)
  Sender: FDA-Public Use
  Company Number: JP-UCBSA-048443

PATIENT
  Age: 20 Year
  Sex: Male

DRUGS (7)
  1. MUCOSOLVAN [Concomitant]
     Route: 048
  2. ZONISAMIDE [Concomitant]
  3. ZONISAMIDE [Concomitant]
  4. EPIRENAT [Concomitant]
     Route: 048
  5. KEPPRA [Suspect]
     Route: 048
  6. BISOLVON [Concomitant]
  7. BACLOFEN [Concomitant]
     Route: 048

REACTIONS (2)
  - PYREXIA [None]
  - MUSCULOSKELETAL STIFFNESS [None]
